FAERS Safety Report 5456586-1 (Version None)
Quarter: 2007Q3

REPORT INFORMATION
  Report Type: 
  Country: None (occurrence: None)
  Receive Date: 20070918
  Receipt Date: 20070907
  Transmission Date: 20080115
  Serious: Yes (Hospitalization, Other)
  Sender: FDA-Public Use
  Company Number: US-JNJFOC-20070901840

PATIENT
  Sex: Female
  Weight: 65.77 kg

DRUGS (3)
  1. TOPAMAX [Suspect]
     Indication: MIGRAINE PROPHYLAXIS
     Dosage: 25 MG IN AM, 50 MG IN PM
     Route: 048
  2. PLAVIX [Concomitant]
     Indication: CORONARY ARTERY DISEASE
  3. ASPIRIN [Concomitant]
     Indication: CORONARY ARTERY DISEASE

REACTIONS (3)
  - DIZZINESS [None]
  - HEADACHE [None]
  - LARGE INTESTINAL HAEMORRHAGE [None]
